FAERS Safety Report 6962137-2 (Version None)
Quarter: 2010Q3

REPORT INFORMATION
  Report Type: 
  Country: None (occurrence: None)
  Receive Date: 20100901
  Receipt Date: 20100901
  Transmission Date: 20110219
  Serious: Yes (Other)
  Sender: FDA-Public Use
  Company Number: None

PATIENT
  Age: 72 Year
  Sex: Female
  Weight: 65.318 kg

DRUGS (1)
  1. MUCINEX DM [Suspect]
     Indication: COUGH
     Dates: start: 20100814, end: 20100816

REACTIONS (3)
  - DRUG HYPERSENSITIVITY [None]
  - DYSPHAGIA [None]
  - TONGUE BITING [None]
